FAERS Safety Report 8835898 (Version 4)
Quarter: 2013Q2

REPORT INFORMATION
  Report Type: Spontaneous
  Country: US (occurrence: US)
  Receive Date: 20121011
  Receipt Date: 20130611
  Transmission Date: 20140414
  Serious: No
  Sender: FDA-Public Use
  Company Number: US-PFIZER INC-2012250283

PATIENT
  Age: 58 Year
  Sex: Female

DRUGS (2)
  1. PRISTIQ [Suspect]
     Dosage: 100 MG, 1X/DAY
  2. PRISTIQ [Suspect]
     Dosage: 50 MG, 1X/DAY

REACTIONS (1)
  - Feeling abnormal [Recovered/Resolved]
